FAERS Safety Report 24351096 (Version 1)
Quarter: 2024Q3

REPORT INFORMATION
  Report Type: Report from Study
  Country: AT (occurrence: AT)
  Receive Date: 20240923
  Receipt Date: 20240923
  Transmission Date: 20241016
  Serious: No
  Sender: ROCHE
  Company Number: AT-ROCHE-2789990

PATIENT
  Age: 61 Year
  Sex: Female
  Weight: 65.0 kg

DRUGS (87)
  1. HERCEPTIN [Suspect]
     Active Substance: TRASTUZUMAB
     Indication: HER2 positive breast cancer
     Route: 041
     Dates: start: 20180627, end: 20180627
  2. HERCEPTIN [Suspect]
     Active Substance: TRASTUZUMAB
     Route: 041
     Dates: start: 20180717, end: 20181217
  3. HERCEPTIN [Suspect]
     Active Substance: TRASTUZUMAB
     Route: 042
     Dates: start: 20190205, end: 20201111
  4. HERCEPTIN [Suspect]
     Active Substance: TRASTUZUMAB
     Route: 042
     Dates: start: 20201202, end: 20220422
  5. PERJETA [Suspect]
     Active Substance: PERTUZUMAB
     Indication: HER2 positive breast cancer
     Dosage: MOST RECENT DOSE PRIOR TO THE EVENT: 17/JUL/2018
     Route: 042
     Dates: start: 20180627, end: 20180627
  6. PERJETA [Suspect]
     Active Substance: PERTUZUMAB
     Route: 042
     Dates: start: 20180717, end: 20181217
  7. PERJETA [Suspect]
     Active Substance: PERTUZUMAB
     Route: 042
     Dates: start: 20190205, end: 20201111
  8. PERJETA [Suspect]
     Active Substance: PERTUZUMAB
     Route: 042
     Dates: start: 20201202, end: 20220422
  9. TAXOTERE [Suspect]
     Active Substance: DOCETAXEL
     Indication: HER2 positive breast cancer
     Route: 042
     Dates: start: 20180627, end: 20181105
  10. LETROZOLE [Suspect]
     Active Substance: LETROZOLE
     Indication: HER2 positive breast cancer
     Route: 048
     Dates: start: 20181130
  11. ZOFRAN [Concomitant]
     Active Substance: ONDANSETRON HYDROCHLORIDE
     Dosage: ONGOING = CHECKED
     Dates: start: 20180626
  12. ZOFRAN [Concomitant]
     Active Substance: ONDANSETRON HYDROCHLORIDE
     Dosage: FREQUENCY TEXT:OTHER
     Route: 048
     Dates: start: 20180629, end: 20181107
  13. ZOFRAN [Concomitant]
     Active Substance: ONDANSETRON HYDROCHLORIDE
     Dosage: FREQUENCY TEXT:PRN
     Route: 048
     Dates: start: 20180628, end: 20181107
  14. DEXAMETHASONE [Concomitant]
     Active Substance: DEXAMETHASONE
     Dosage: ONGOING = CHECKED
     Dates: start: 20180626
  15. DEXAMETHASONE [Concomitant]
     Active Substance: DEXAMETHASONE
     Route: 048
     Dates: start: 20180629, end: 20180629
  16. DIPHENHYDRAMINE HYDROCHLORIDE [Concomitant]
     Active Substance: DIPHENHYDRAMINE HYDROCHLORIDE
     Dosage: ONGOING = CHECKED? FREQUENCY TEXT:Q3W
     Route: 042
     Dates: start: 20180626
  17. NEXIUM [Concomitant]
     Active Substance: ESOMEPRAZOLE MAGNESIUM
     Dosage: ONGOING = CHECKED
     Route: 048
     Dates: start: 20180719
  18. VOLTAREN [Concomitant]
     Active Substance: DICLOFENAC SODIUM
     Dosage: ONGOING = CHECKED? FREQUENCY TEXT:PRN
     Route: 048
     Dates: start: 20180816
  19. CLINDAMYCIN [Concomitant]
     Active Substance: CLINDAMYCIN
     Dosage: ONGOING = CHECKED
     Route: 048
     Dates: start: 20190205
  20. DAFLON [Concomitant]
     Dosage: ONGOING = CHECKED? FREQUENCY TEXT:OTHER
     Route: 048
     Dates: start: 20190509
  21. ESOMEPRAZOLE [Concomitant]
     Active Substance: ESOMEPRAZOLE
     Route: 048
     Dates: start: 20180625, end: 20180719
  22. LIPEGFILGRASTIM [Concomitant]
     Active Substance: LIPEGFILGRASTIM
     Route: 058
     Dates: start: 20180625, end: 20181107
  23. CHOLECALCIFEROL [Concomitant]
     Active Substance: CHOLECALCIFEROL
     Route: 048
     Dates: start: 20180628, end: 20180628
  24. CHOLECALCIFEROL [Concomitant]
     Active Substance: CHOLECALCIFEROL
     Route: 048
     Dates: start: 20180629, end: 20190319
  25. ACETAMINOPHEN [Concomitant]
     Active Substance: ACETAMINOPHEN
     Dosage: FREQUENCY TEXT:PRN
     Route: 048
     Dates: start: 20180628, end: 20181107
  26. DEXPANTHENOL [Concomitant]
     Active Substance: DEXPANTHENOL
     Dosage: FREQUENCY TEXT:PRN
     Route: 048
     Dates: start: 20180628, end: 20181107
  27. POLYETHYLENE GLYCOL 4000 [Concomitant]
     Active Substance: POLYETHYLENE GLYCOL 4000
     Indication: Constipation
     Dosage: FREQUENCY TEXT:PRN
     Route: 048
     Dates: start: 20180628, end: 20181107
  28. MIDAZOLAM HYDROCHLORIDE [Concomitant]
     Active Substance: MIDAZOLAM HYDROCHLORIDE
     Dosage: FREQUENCY TEXT:ONCE
     Route: 042
     Dates: start: 20180626, end: 20180626
  29. PROPOFOL [Concomitant]
     Active Substance: PROPOFOL
     Dosage: FREQUENCY TEXT:ONCE
     Route: 042
     Dates: start: 20180626, end: 20180626
  30. EMEND [Concomitant]
     Active Substance: APREPITANT
     Route: 050
     Dates: start: 20180719, end: 20181107
  31. CEFUROXIME [Concomitant]
     Active Substance: CEFUROXIME
     Route: 048
     Dates: start: 20180808, end: 20180818
  32. NYSTATIN [Concomitant]
     Active Substance: NYSTATIN
     Dosage: 20? FREQUENCY TEXT:PRN
     Route: 062
     Dates: start: 20180907, end: 20181020
  33. FLUCLOXACILLIN [Concomitant]
     Active Substance: FLUCLOXACILLIN
     Route: 047
     Dates: start: 20190116, end: 20190122
  34. BISOPROLOL FUMARATE [Concomitant]
     Active Substance: BISOPROLOL FUMARATE
     Route: 048
     Dates: start: 20200817
  35. PULMICORT TURBUHALER [Concomitant]
     Active Substance: BUDESONIDE
     Indication: Volvulus
  36. PASPERTIN [Concomitant]
     Indication: Volvulus
  37. BRICANYL [Concomitant]
     Active Substance: TERBUTALINE SULFATE
     Indication: Volvulus
  38. DORMICUM [Concomitant]
     Indication: Pneumonia
  39. SUFENTANIL [Concomitant]
     Active Substance: SUFENTANIL
     Indication: Pneumonia
  40. GASTROMIRO [Concomitant]
     Indication: Volvulus
  41. NEOSTIGMINE [Concomitant]
     Active Substance: NEOSTIGMINE
     Indication: Ileus paralytic
  42. MEROPENEM [Concomitant]
     Active Substance: MEROPENEM
     Indication: Sepsis
  43. LINEZOLID [Concomitant]
     Active Substance: LINEZOLID
     Indication: Sepsis
  44. FENTANYL [Concomitant]
     Active Substance: FENTANYL\FENTANYL CITRATE
     Indication: Sepsis
  45. KETANEST [Concomitant]
     Indication: Sepsis
  46. ERYTHROMYCIN [Concomitant]
     Active Substance: ERYTHROMYCIN
     Indication: Sepsis
  47. ALBUMIN HUMAN [Concomitant]
     Active Substance: ALBUMIN HUMAN
     Indication: Sepsis
  48. BERODUALIN [Concomitant]
     Indication: Volvulus
  49. HYPOTRIT [Concomitant]
     Indication: Sepsis
  50. ELOZELL FORTE [Concomitant]
     Indication: Sepsis
  51. LASIX [Concomitant]
     Active Substance: FUROSEMIDE
     Indication: Sepsis
  52. FLUCONAZOLE [Concomitant]
     Active Substance: FLUCONAZOLE
     Indication: Sepsis
  53. PERFALGAN [Concomitant]
     Active Substance: ACETAMINOPHEN
     Indication: Sepsis
  54. OXAZEPAM [Concomitant]
     Active Substance: OXAZEPAM
     Indication: Sepsis
  55. CEFEPIME HYDROCHLORIDE [Concomitant]
     Active Substance: CEFEPIME HYDROCHLORIDE
     Indication: Sepsis
  56. NOVALGIN (AUSTRIA) [Concomitant]
     Indication: Sepsis
  57. ZOFRAN [Concomitant]
     Active Substance: ONDANSETRON HYDROCHLORIDE
     Indication: Sepsis
  58. TEMESTA [Concomitant]
     Indication: Sepsis
  59. FRAGMIN [Concomitant]
     Active Substance: DALTEPARIN SODIUM
     Indication: Sepsis
  60. INDERAL [Concomitant]
     Active Substance: PROPRANOLOL HYDROCHLORIDE
     Indication: Sepsis
  61. ACEMIN (AUSTRIA) [Concomitant]
     Indication: Sepsis
  62. FUROSEMIDE\SPIRONOLACTONE [Concomitant]
     Active Substance: FUROSEMIDE\SPIRONOLACTONE
     Indication: Sepsis
  63. SEROQUEL [Concomitant]
     Active Substance: QUETIAPINE FUMARATE
     Indication: Sepsis
  64. XIPAMIDE [Concomitant]
     Active Substance: XIPAMIDE
     Indication: Ileus paralytic
  65. TRAZODONE HYDROCHLORIDE [Concomitant]
     Active Substance: TRAZODONE HYDROCHLORIDE
     Indication: Sepsis
  66. MAGNESIUM CARBONATE\MAGNESIUM OXIDE [Concomitant]
     Active Substance: MAGNESIUM CARBONATE\MAGNESIUM OXIDE
     Indication: Sepsis
  67. PANTOPRAZOLE SODIUM [Concomitant]
     Active Substance: PANTOPRAZOLE SODIUM
     Indication: Sepsis
  68. ETILEFRINE HYDROCHLORIDE [Concomitant]
     Active Substance: ETILEFRINE HYDROCHLORIDE
     Indication: Sepsis
  69. METASOL [Concomitant]
     Active Substance: BENZOPHENONE\HYDROQUINONE
     Indication: Ileus paralytic
  70. DIPHENHYDRAMINE HYDROCHLORIDE [Concomitant]
     Active Substance: DIPHENHYDRAMINE HYDROCHLORIDE
     Indication: Ileus paralytic
  71. PROPOFOL [Concomitant]
     Active Substance: PROPOFOL
     Indication: Ileus paralytic
  72. GENTAMICIN SULFATE [Concomitant]
     Active Substance: GENTAMICIN SULFATE
     Indication: Volvulus
  73. NALOXEGOL OXALATE [Concomitant]
     Active Substance: NALOXEGOL OXALATE
     Indication: Volvulus
  74. NOREPINEPHRINE HYDROCHLORIDE, (+/-)- [Concomitant]
     Active Substance: NOREPINEPHRINE HYDROCHLORIDE, (+/-)-
     Indication: Sepsis
  75. MORPHINE [Concomitant]
     Active Substance: MORPHINE
     Indication: Ileus paralytic
  76. POTASSIUM CHLORIDE [Concomitant]
     Active Substance: POTASSIUM CHLORIDE
     Indication: Ileus paralytic
  77. POLYETHYLENE GLYCOL 3350\POTASSIUM CHLORIDE\SODIUM BICARBONATE\SODIUM [Concomitant]
     Active Substance: POLYETHYLENE GLYCOL 3350\POTASSIUM CHLORIDE\SODIUM BICARBONATE\SODIUM CHLORIDE
     Indication: Volvulus
  78. CLONIDINE [Concomitant]
     Active Substance: CLONIDINE
     Indication: Volvulus
  79. CLONIDINE [Concomitant]
     Active Substance: CLONIDINE
     Indication: Ileus paralytic
  80. NEPRESOL [Concomitant]
     Indication: Ileus paralytic
  81. SERTRALINE HYDROCHLORIDE [Concomitant]
     Active Substance: SERTRALINE HYDROCHLORIDE
     Indication: Volvulus
  82. MELPERONE HYDROCHLORIDE [Concomitant]
     Active Substance: MELPERONE HYDROCHLORIDE
     Indication: Ileus paralytic
  83. ESOMEPRAZOLE [Concomitant]
     Active Substance: ESOMEPRAZOLE
     Indication: Ileus paralytic
  84. ASCORBIC ACID\CALCIUM PHOSPHATE\CHOLECALCIFEROL\CITRIC ACID MONOHYDRAT [Concomitant]
     Active Substance: ASCORBIC ACID\CALCIUM PHOSPHATE\CHOLECALCIFEROL\CITRIC ACID MONOHYDRATE
  85. MELATONIN [Concomitant]
     Active Substance: MELATONIN
     Indication: Insomnia
  86. XGEVA [Concomitant]
     Active Substance: DENOSUMAB
     Indication: Metastases to bone
     Route: 058
     Dates: start: 20180628, end: 20230504
  87. XGEVA [Concomitant]
     Active Substance: DENOSUMAB
     Route: 058
     Dates: start: 20230706

REACTIONS (1)
  - Polyneuropathy [Not Recovered/Not Resolved]

NARRATIVE: CASE EVENT DATE: 20200615
